FAERS Safety Report 18874296 (Version 1)
Quarter: 2021Q1

REPORT INFORMATION
  Report Type: Spontaneous
  Country: US (occurrence: US)
  Receive Date: 20210210
  Receipt Date: 20210210
  Transmission Date: 20210420
  Serious: Yes (Other)
  Sender: FDA-Public Use
  Company Number: US-INDIVIOR EUROPE LIMITED-INDV-128326-2021

PATIENT

DRUGS (5)
  1. SUBOXONE [Suspect]
     Active Substance: BUPRENORPHINE HYDROCHLORIDE\NALOXONE HYDROCHLORIDE
     Indication: PRODUCT USED FOR UNKNOWN INDICATION
     Dosage: UNK
     Route: 065
  2. SUBOXONE [Suspect]
     Active Substance: BUPRENORPHINE HYDROCHLORIDE\NALOXONE HYDROCHLORIDE
     Dosage: 1 MILLIGRAM, UNK (GOT DOWN TO 1MG)
     Route: 065
  3. IBUPROFEN. [Concomitant]
     Active Substance: IBUPROFEN
     Indication: PRODUCT USED FOR UNKNOWN INDICATION
     Dosage: UNK
     Route: 065
  4. SUBOXONE [Suspect]
     Active Substance: BUPRENORPHINE HYDROCHLORIDE\NALOXONE HYDROCHLORIDE
     Dosage: 2 MILLIGRAM, UNK  (CUT THE FILMS INTO 2 MG)
     Route: 065
  5. SUBOXONE [Suspect]
     Active Substance: BUPRENORPHINE HYDROCHLORIDE\NALOXONE HYDROCHLORIDE
     Dosage: 22 MILLIGRAM, UNK (TOOK 22 MG TOTAL)
     Route: 065
     Dates: start: 20210201

REACTIONS (6)
  - Drug withdrawal syndrome [Not Recovered/Not Resolved]
  - Intentional underdose [Unknown]
  - Foot fracture [Unknown]
  - Wrong technique in product usage process [Unknown]
  - Vascular pain [Not Recovered/Not Resolved]
  - Pain in extremity [Not Recovered/Not Resolved]
